FAERS Safety Report 13993642 (Version 4)
Quarter: 2018Q1

REPORT INFORMATION
  Report Type: Spontaneous
  Country: IN (occurrence: IN)
  Receive Date: 20170920
  Receipt Date: 20180307
  Transmission Date: 20180508
  Serious: Yes (Death, Other)
  Sender: FDA-Public Use
  Company Number: IN-PFIZER INC-2017387526

PATIENT
  Age: 45 Year
  Sex: Female

DRUGS (6)
  1. BECOSULES /01353701/ [Concomitant]
     Dosage: UNK UNK, 1X/DAY (20 DAYS)
  2. PALBACE [Suspect]
     Active Substance: PALBOCICLIB
     Indication: BREAST CANCER METASTATIC
     Dosage: 125 MG, CYCLIC, 1X/DAY (D1-D 21, 7DAYS OFF X 28 DAYS CYCLE)
     Route: 048
     Dates: start: 20170827
  3. LETROZOLE. [Concomitant]
     Active Substance: LETROZOLE
     Dosage: 2.5 MG, 1X/DAY
     Dates: start: 20170827
  4. GLYCEROL [Concomitant]
     Active Substance: GLYCERIN
     Dosage: 20 ML, UNK
  5. CANDID /00212501/ [Concomitant]
     Dosage: UNK UNK, 3X/DAY
  6. FULVESTRANT. [Concomitant]
     Active Substance: FULVESTRANT
     Dosage: UNK

REACTIONS (8)
  - Alanine aminotransferase increased [Unknown]
  - Cardiac arrest [Fatal]
  - Red blood cell count decreased [Unknown]
  - Haemoglobin decreased [Unknown]
  - Cough [Unknown]
  - Dyspnoea [Unknown]
  - Headache [Unknown]
  - Pleural effusion [Unknown]

NARRATIVE: CASE EVENT DATE: 20180127
